FAERS Safety Report 7207669-7 (Version None)
Quarter: 2011Q1

REPORT INFORMATION
  Report Type: 
  Country: None (occurrence: None)
  Receive Date: 20110103
  Receipt Date: 20101222
  Transmission Date: 20110831
  Serious: Yes (Death)
  Sender: FDA-Public Use
  Company Number: MX-PFIZER INC-2010177950

PATIENT
  Age: 42 Year
  Sex: Female

DRUGS (2)
  1. INSULIN [Concomitant]
  2. LYRICA [Suspect]
     Indication: NEURALGIA
     Dosage: 75 MG, 2X/DAY
     Route: 048
     Dates: start: 20100329

REACTIONS (2)
  - INCORRECT DOSE ADMINISTERED [None]
  - DEATH [None]
